FAERS Safety Report 5341184-0 (Version None)
Quarter: 2007Q2

REPORT INFORMATION
  Report Type: 
  Country: None (occurrence: None)
  Receive Date: 20070405
  Receipt Date: 20070116
  Transmission Date: 20071010
  Serious: No
  Sender: FDA-Public Use
  Company Number: US200701003066

PATIENT
  Age: 37 Year
  Sex: Female

DRUGS (2)
  1. CYMBALTA [Suspect]
     Indication: ANXIETY
     Dosage: 60 MG, DAILY (1/D)
     Dates: start: 20061204, end: 20070110
  2. XANAX /USA/ (ALPRAZOLAM) [Concomitant]

REACTIONS (11)
  - ABNORMAL BEHAVIOUR [None]
  - ANXIETY [None]
  - DELUSIONAL DISORDER, UNSPECIFIED TYPE [None]
  - DIZZINESS [None]
  - HALLUCINATION, VISUAL [None]
  - HYPERTENSION [None]
  - INFLUENZA LIKE ILLNESS [None]
  - MALAISE [None]
  - NAUSEA [None]
  - PYREXIA [None]
  - VOMITING [None]
